FAERS Safety Report 6394240-2 (Version None)
Quarter: 2009Q4

REPORT INFORMATION
  Report Type: 
  Country: None (occurrence: None)
  Receive Date: 20091008
  Receipt Date: 20091001
  Transmission Date: 20100525
  Serious: Yes (Death, Hospitalization)
  Sender: FDA-Public Use
  Company Number: US-GILEAD-2009-0023318

PATIENT
  Sex: Female
  Weight: 76.227 kg

DRUGS (24)
  1. LETAIRIS [Suspect]
     Indication: PULMONARY ARTERIAL HYPERTENSION
     Route: 048
     Dates: start: 20080523
  2. OXYGEN [Concomitant]
  3. ASPIRIN [Concomitant]
  4. PLAVIX [Concomitant]
  5. AMITRIPTYLINE HCL [Concomitant]
  6. LASIX [Concomitant]
  7. LISINOPRIL [Concomitant]
  8. LEVOBUNOLOL HCL [Concomitant]
  9. LIPITOR [Concomitant]
  10. CLONIDINE [Concomitant]
  11. LIDOCAINE [Concomitant]
  12. GABAPENTIN [Concomitant]
  13. KETAMINE HCL [Concomitant]
  14. KETOPROFEN [Concomitant]
  15. LECITHIN [Concomitant]
  16. POLOXAMER GEL [Concomitant]
  17. NASONEX [Concomitant]
  18. CIPRO [Concomitant]
  19. FOLIC ACID [Concomitant]
  20. BONIVA [Concomitant]
  21. NEXIUM [Concomitant]
  22. CALCIUM+D [Concomitant]
  23. VITAMIN D [Concomitant]
  24. ZYRTEC [Concomitant]

REACTIONS (5)
  - HEART RATE DECREASED [None]
  - HYPERTENSION [None]
  - PULMONARY ARTERIAL HYPERTENSION [None]
  - PULMONARY FIBROSIS [None]
  - SCLERODERMA [None]
